FAERS Safety Report 7479774-1 (Version None)
Quarter: 2011Q2

REPORT INFORMATION
  Report Type: 
  Country: None (occurrence: None)
  Receive Date: 20110513
  Receipt Date: 20110506
  Transmission Date: 20111010
  Serious: Yes (Hospitalization, Other)
  Sender: FDA-Public Use
  Company Number: US-MERCK-0712USA08353

PATIENT
  Age: 48 Year
  Sex: Female
  Weight: 50 kg

DRUGS (4)
  1. LIPITOR [Concomitant]
     Indication: BLOOD CHOLESTEROL INCREASED
     Route: 065
     Dates: start: 20000101, end: 20070101
  2. FOSAMAX [Suspect]
     Indication: OSTEOPOROSIS
     Route: 048
     Dates: start: 20070101, end: 20080301
  3. FOSAMAX [Suspect]
     Route: 048
     Dates: start: 20010320, end: 20020301
  4. ZYRTEC [Concomitant]
     Route: 065
     Dates: start: 20000101, end: 20070101

REACTIONS (35)
  - RECTOCELE [None]
  - CARPAL TUNNEL SYNDROME [None]
  - HYPERCHOLESTEROLAEMIA [None]
  - NON-CARDIAC CHEST PAIN [None]
  - ANXIETY [None]
  - BONE LESION [None]
  - SINUS CONGESTION [None]
  - RECTAL POLYP [None]
  - URTICARIA [None]
  - CERVICOBRACHIAL SYNDROME [None]
  - TEMPOROMANDIBULAR JOINT SYNDROME [None]
  - STRESS URINARY INCONTINENCE [None]
  - SOMNOLENCE [None]
  - ARTHROPATHY [None]
  - SPINAL COLUMN INJURY [None]
  - COLITIS [None]
  - DEAFNESS UNILATERAL [None]
  - HAEMATOCHEZIA [None]
  - FALL [None]
  - VAGINAL CYST [None]
  - FRACTURED SACRUM [None]
  - CONTUSION [None]
  - OSTEONECROSIS OF JAW [None]
  - CYSTOCELE [None]
  - GASTROENTERITIS [None]
  - EYE PAIN [None]
  - ASTHENIA [None]
  - HEADACHE [None]
  - NECK PAIN [None]
  - HAEMORRHOIDS [None]
  - DEPRESSION [None]
  - TENOSYNOVITIS STENOSANS [None]
  - OSTEOARTHRITIS [None]
  - PAIN [None]
  - SPINAL OSTEOARTHRITIS [None]
